FAERS Safety Report 25083495 (Version 3)
Quarter: 2025Q2

REPORT INFORMATION
  Report Type: Report from Study
  Country: US (occurrence: US)
  Receive Date: 20250317
  Receipt Date: 20250501
  Transmission Date: 20250716
  Serious: Yes (Hospitalization, Other)
  Sender: GILEAD
  Company Number: US-GILEAD-2025-0707326

PATIENT
  Sex: Male

DRUGS (5)
  1. AMBRISENTAN [Suspect]
     Active Substance: AMBRISENTAN
     Indication: Pulmonary arterial hypertension
     Dosage: 10 MG, QD
     Route: 048
     Dates: start: 20250123
  2. AMBRISENTAN [Suspect]
     Active Substance: AMBRISENTAN
     Indication: Pulmonary arterial hypertension
  3. TADALAFIL [Concomitant]
     Active Substance: TADALAFIL
  4. ADCIRCA [Concomitant]
     Active Substance: TADALAFIL
  5. ORENITRAM [Concomitant]
     Active Substance: TREPROSTINIL

REACTIONS (3)
  - Shoulder arthroplasty [Unknown]
  - Diarrhoea [Unknown]
  - Nausea [Unknown]
